FAERS Safety Report 6643676-0 (Version None)
Quarter: 2010Q1

REPORT INFORMATION
  Report Type: 
  Country: None (occurrence: None)
  Receive Date: 20100321
  Receipt Date: 20100308
  Transmission Date: 20100710
  Serious: Yes (Other)
  Sender: FDA-Public Use
  Company Number: DE-BRISTOL-MYERS SQUIBB COMPANY-15023047

PATIENT
  Age: 19 Year
  Sex: Male

DRUGS (4)
  1. CISPLATIN [Suspect]
     Indication: TERATOMA
  2. ETOPOSIDE [Suspect]
     Indication: TERATOMA
  3. BLEOMYCIN SULFATE [Suspect]
     Indication: TERATOMA
  4. IFOSFAMIDE [Suspect]
     Indication: TERATOMA

REACTIONS (1)
  - CEREBROVASCULAR ACCIDENT [None]
